FAERS Safety Report 14775641 (Version 6)
Quarter: 2020Q1

REPORT INFORMATION
  Report Type: Report from Study
  Country: US (occurrence: US)
  Receive Date: 20180418
  Receipt Date: 20200220
  Transmission Date: 20200409
  Serious: Yes (Hospitalization)
  Sender: FDA-Public Use
  Company Number: US-ACTELION-A-NJ2018-170728

PATIENT
  Age: 73 Year
  Sex: Female

DRUGS (5)
  1. ADCIRCA [Concomitant]
     Active Substance: TADALAFIL
  2. LASIX [Concomitant]
     Active Substance: FUROSEMIDE
  3. UPTRAVI [Suspect]
     Active Substance: SELEXIPAG
     Indication: PULMONARY ARTERIAL HYPERTENSION
     Dosage: 800 MCG, BID
     Route: 048
     Dates: start: 20160604
  4. AMLODIPINE [Concomitant]
     Active Substance: AMLODIPINE BESYLATE
  5. LOSARTAN. [Concomitant]
     Active Substance: LOSARTAN

REACTIONS (8)
  - Product dose omission [Unknown]
  - Hypoxia [Unknown]
  - Clostridium difficile infection [Unknown]
  - Orthostatic hypotension [Unknown]
  - Dyspnoea [Unknown]
  - Atrial fibrillation [Unknown]
  - Syncope [Unknown]
  - Wrist fracture [Unknown]

NARRATIVE: CASE EVENT DATE: 20180315
